FAERS Safety Report 6738839-X (Version None)
Quarter: 2010Q2

REPORT INFORMATION
  Report Type: 
  Country: None (occurrence: None)
  Receive Date: 20100524
  Receipt Date: 20100513
  Transmission Date: 20101027
  Serious: Yes (Hospitalization)
  Sender: FDA-Public Use
  Company Number: PT-MPIJNJ-2010-02220

PATIENT

DRUGS (3)
  1. VELCADE [Suspect]
     Indication: MULTIPLE MYELOMA
     Dosage: UNK
  2. DEXAMETHASONE [Suspect]
     Indication: MULTIPLE MYELOMA
  3. ACYCLOVIR SODIUM [Concomitant]

REACTIONS (2)
  - HEPATITIS C [None]
  - PNEUMONIA [None]
